FAERS Safety Report 10173632 (Version 1)
Quarter: 2014Q2

REPORT INFORMATION
  Report Type: Spontaneous
  Country: US (occurrence: None)
  Receive Date: 20140514
  Receipt Date: 20140514
  Transmission Date: 20141212
  Serious: Yes (Other)
  Sender: FDA-Public Use
  Company Number: None

PATIENT
  Age: 52 Year
  Sex: Female

DRUGS (1)
  1. E-MYCIN [Suspect]
     Indication: PRODUCT USED FOR UNKNOWN INDICATION
     Dosage: 2 PILLS TWICE DAILY, TWICE DAILY, TAKEN BY MOUTH
     Route: 048
     Dates: start: 20140501, end: 20140506

REACTIONS (7)
  - Mass [None]
  - Skin burning sensation [None]
  - Skin exfoliation [None]
  - Photosensitivity reaction [None]
  - Dermatitis allergic [None]
  - Urticaria [None]
  - Peripheral swelling [None]
